FAERS Safety Report 4577390-2 (Version None)
Quarter: 2005Q1

REPORT INFORMATION
  Report Type: 
  Country: None (occurrence: None)
  Receive Date: 20050210
  Receipt Date: 20050208
  Transmission Date: 20050727
  Serious: Yes (Other)
  Sender: FDA-Public Use
  Company Number: 2005002369

PATIENT
  Age: 52 Year
  Sex: Female
  Weight: 47 kg

DRUGS (3)
  1. TAGONIS [Suspect]
     Route: 048
  2. STANGYL [Suspect]
     Route: 048
  3. TAVOR [Suspect]
     Route: 048

REACTIONS (5)
  - COMA [None]
  - DRUG SCREEN POSITIVE [None]
  - SOMNOLENCE [None]
  - SUICIDE ATTEMPT [None]
  - TACHYCARDIA [None]
